FAERS Safety Report 16846833 (Version 10)
Quarter: 2020Q3

REPORT INFORMATION
  Report Type: Report from Study
  Country: MY (occurrence: MY)
  Receive Date: 20190924
  Receipt Date: 20200701
  Transmission Date: 20201105
  Serious: Yes (Death, Hospitalization)
  Sender: FDA-Public Use
  Company Number: PHHO2019MY007648

PATIENT
  Age: 68 Year
  Sex: Male
  Weight: 55.8 kg

DRUGS (26)
  1. CYANOCOBALAMIN. [Concomitant]
     Active Substance: CYANOCOBALAMIN
     Indication: PREMEDICATION
     Dosage: UNK
     Route: 065
     Dates: start: 20190708
  2. GRANISETRON [Concomitant]
     Active Substance: GRANISETRON
     Indication: PREMEDICATION
     Dosage: UNK
     Route: 065
     Dates: start: 20190717
  3. COMPARATOR PEMBROLIZUMAB [Suspect]
     Active Substance: PEMBROLIZUMAB
     Dosage: 200 MG, Q3W
     Route: 042
     Dates: start: 20190912
  4. BLINDED ACZ885 [Suspect]
     Active Substance: CANAKINUMAB
     Indication: NON-SMALL CELL LUNG CANCER
     Dosage: 450 MG, Q3W
     Route: 042
     Dates: start: 20190717, end: 20190717
  5. BLINDED PEMBROLIZUMAB [Suspect]
     Active Substance: PEMBROLIZUMAB
     Indication: NON-SMALL CELL LUNG CANCER
     Dosage: 450 MG, Q3W
     Route: 042
     Dates: start: 20190717, end: 20190717
  6. BLINDED ACZ885 [Suspect]
     Active Substance: CANAKINUMAB
     Dosage: 330 MG, Q3W
     Route: 042
     Dates: start: 20190912
  7. BLINDED CARBOPLATIN [Suspect]
     Active Substance: CARBOPLATIN
     Dosage: 330 MG, Q3W
     Route: 042
     Dates: start: 20190912
  8. PLACEBO [Suspect]
     Active Substance: UNSPECIFIED INGREDIENT
     Dosage: 330 MG, Q3W
     Route: 042
     Dates: start: 20190912
  9. AMLODIPINE [Concomitant]
     Active Substance: AMLODIPINE BESYLATE
     Indication: GENERAL PHYSICAL CONDITION
     Dosage: UNK
     Route: 065
     Dates: start: 20120101
  10. DEXAMETHASONE. [Concomitant]
     Active Substance: DEXAMETHASONE
     Indication: PREMEDICATION
     Dosage: UNK
     Route: 065
     Dates: start: 20190717, end: 20190717
  11. BLINDED CARBOPLATIN [Suspect]
     Active Substance: CARBOPLATIN
     Indication: NON-SMALL CELL LUNG CANCER
     Dosage: 450 MG, Q3W
     Route: 042
     Dates: start: 20190717, end: 20190717
  12. BLINDED CARBOPLATIN [Suspect]
     Active Substance: CARBOPLATIN
     Dosage: 330 MG, Q3W
     Route: 042
     Dates: start: 20190912
  13. COMPARATOR PEMBROLIZUMAB [Suspect]
     Active Substance: PEMBROLIZUMAB
     Indication: NON-SMALL CELL LUNG CANCER
     Dosage: 200 MG, Q3W
     Route: 042
     Dates: start: 20190717, end: 20190717
  14. COMPARATOR PEMETREXED [Suspect]
     Active Substance: PEMETREXED DISODIUM
     Indication: NON-SMALL CELL LUNG CANCER
     Dosage: 790 MG, Q3W
     Route: 042
     Dates: start: 20190717, end: 20190717
  15. COMPARATOR PEMETREXED [Suspect]
     Active Substance: PEMETREXED DISODIUM
     Dosage: 580 MG, Q3W
     Route: 042
     Dates: start: 20190912
  16. PLACEBO [Suspect]
     Active Substance: UNSPECIFIED INGREDIENT
     Indication: NON-SMALL CELL LUNG CANCER
     Dosage: 450 MG, Q3W
     Route: 042
     Dates: start: 20190717, end: 20190717
  17. CANAKINUMAB. [Suspect]
     Active Substance: CANAKINUMAB
     Dosage: UNK
     Route: 042
     Dates: start: 20190912
  18. BLINDED PEMETREXED [Suspect]
     Active Substance: PEMETREXED
     Indication: NON-SMALL CELL LUNG CANCER
     Dosage: 450 MG, Q3W
     Route: 042
     Dates: start: 20190717, end: 20190717
  19. BLINDED NO TREATMENT RECEIVED [Suspect]
     Active Substance: INVESTIGATIONAL PRODUCT
     Dosage: 330 MG, Q3W
     Route: 042
     Dates: start: 20190912
  20. BLINDED PEMBROLIZUMAB [Suspect]
     Active Substance: PEMBROLIZUMAB
     Dosage: 330 MG, Q3W
     Route: 042
     Dates: start: 20190912
  21. CANAKINUMAB. [Suspect]
     Active Substance: CANAKINUMAB
     Indication: NON-SMALL CELL LUNG CANCER
     Dosage: UNK
     Route: 058
     Dates: start: 20190717, end: 20190717
  22. BLINDED NO TREATMENT RECEIVED [Suspect]
     Active Substance: INVESTIGATIONAL PRODUCT
     Indication: NON-SMALL CELL LUNG CANCER
     Dosage: 450 MG, Q3W
     Route: 042
     Dates: start: 20190717, end: 20190717
  23. BLINDED PEMETREXED [Suspect]
     Active Substance: PEMETREXED
     Dosage: 330 MG, Q3W
     Route: 042
     Dates: start: 20190912
  24. BLINDED CARBOPLATIN [Suspect]
     Active Substance: CARBOPLATIN
     Indication: NON-SMALL CELL LUNG CANCER
     Dosage: 450 MG, Q3W
     Route: 042
     Dates: start: 20190717, end: 20190717
  25. POTASSIUM CHLORIDE. [Concomitant]
     Active Substance: POTASSIUM CHLORIDE
     Indication: PREMEDICATION
     Dosage: 10 %
     Route: 065
     Dates: start: 20190717
  26. ENOXAPARIN [Concomitant]
     Active Substance: ENOXAPARIN
     Indication: THROMBOSIS PROPHYLAXIS
     Dosage: UNK
     Route: 065
     Dates: start: 20190723, end: 20190729

REACTIONS (2)
  - Pericardial effusion [Not Recovered/Not Resolved]
  - Pneumonia [Recovered/Resolved]

NARRATIVE: CASE EVENT DATE: 20190719
